FAERS Safety Report 9765059 (Version 1)
Quarter: 2013Q4

REPORT INFORMATION
  Report Type: Spontaneous
  Country: US (occurrence: None)
  Receive Date: 20131216
  Receipt Date: 20131216
  Transmission Date: 20140711
  Serious: Yes (Other)
  Sender: FDA-Public Use
  Company Number: None

PATIENT
  Age: 26 Year
  Sex: Male
  Weight: 90.72 kg

DRUGS (1)
  1. MIRVASO [Suspect]
     Indication: ROSACEA
     Dosage: ONCE DAILY, APPLIED TO THE SURFACE USUALLY TO THE SKIN
     Route: 061
     Dates: start: 20131205, end: 20131207

REACTIONS (2)
  - Flushing [None]
  - Rebound effect [None]
